FAERS Safety Report 8264952-4 (Version None)
Quarter: 2012Q2

REPORT INFORMATION
  Report Type: 
  Country: None (occurrence: None)
  Receive Date: 20120406
  Receipt Date: 20120327
  Transmission Date: 20120825
  Serious: Yes (Hospitalization, Other)
  Sender: FDA-Public Use
  Company Number: US-JNJFOC-20120314496

PATIENT
  Sex: Female
  Weight: 79.38 kg

DRUGS (9)
  1. METHOTREXATE [Suspect]
     Indication: PRODUCT USED FOR UNKNOWN INDICATION
     Route: 065
  2. LIDODERM [Concomitant]
     Indication: INTERVERTEBRAL DISC PROTRUSION
     Route: 062
  3. REMICADE [Suspect]
     Indication: RHEUMATOID ARTHRITIS
     Route: 042
     Dates: start: 20100201, end: 20120207
  4. AMIODARONE [Suspect]
     Indication: ATRIAL FIBRILLATION
     Route: 065
  5. GLUCOSAMINE [Concomitant]
     Indication: INTERVERTEBRAL DISC DEGENERATION
     Route: 048
     Dates: start: 20090101
  6. ALENDRONATE SODIUM [Concomitant]
     Indication: BONE DISORDER
     Route: 048
  7. OMEPRAZOLE [Concomitant]
     Indication: HIATUS HERNIA
     Route: 048
     Dates: start: 20090101
  8. MELOXICAM [Concomitant]
     Indication: PAIN
     Route: 048
     Dates: start: 20100101
  9. LEVOTHYROXINE SODIUM [Concomitant]
     Indication: HYPOTHYROIDISM
     Route: 048
     Dates: start: 19820101

REACTIONS (7)
  - SINUSITIS [None]
  - ADVERSE EVENT [None]
  - ATRIAL FIBRILLATION [None]
  - RENAL FAILURE [None]
  - PNEUMONIA [None]
  - PULMONARY FIBROSIS [None]
  - PULMONARY OEDEMA [None]
